FAERS Safety Report 6100394-5 (Version None)
Quarter: 2009Q1

REPORT INFORMATION
  Report Type: 
  Country: None (occurrence: None)
  Receive Date: 20090303
  Receipt Date: 20090225
  Transmission Date: 20090719
  Serious: Yes (Life-Threatening, Hospitalization)
  Sender: FDA-Public Use
  Company Number: JP-EISAI MEDICAL RESEARCH-E2020-04125-SPO-JP

PATIENT
  Age: 71 Year
  Sex: Female

DRUGS (4)
  1. ARICEPT [Suspect]
     Indication: DEMENTIA
     Route: 048
     Dates: start: 20070301, end: 20090101
  2. LEXOTAN [Concomitant]
     Indication: DEPRESSIVE SYMPTOM
     Route: 048
  3. PREDONINE [Concomitant]
     Indication: DEPRESSION
     Route: 048
  4. PAXIL [Concomitant]
     Indication: DEPRESSIVE SYMPTOM
     Route: 048

REACTIONS (1)
  - ARRHYTHMIA [None]
